FAERS Safety Report 9473478 (Version 1)
Quarter: 2013Q3

REPORT INFORMATION
  Report Type: Spontaneous
  Country: US (occurrence: US)
  Receive Date: 20130823
  Receipt Date: 20130823
  Transmission Date: 20140515
  Serious: Yes (Other)
  Sender: FDA-Public Use
  Company Number: US-BRISTOL-MYERS SQUIBB COMPANY-19026236

PATIENT
  Age: 17 Year
  Sex: Female

DRUGS (4)
  1. SPRYCEL [Suspect]
  2. FLUCONAZOLE [Concomitant]
  3. ACYCLOVIR [Concomitant]
  4. INSULIN [Concomitant]

REACTIONS (1)
  - Neutrophil count decreased [Unknown]
